FAERS Safety Report 8256963-X (Version None)
Quarter: 2012Q2

REPORT INFORMATION
  Report Type: 
  Country: None (occurrence: None)
  Receive Date: 20120403
  Receipt Date: 20120330
  Transmission Date: 20120825
  Serious: Yes (Hospitalization)
  Sender: FDA-Public Use
  Company Number: US-GLAXOSMITHKLINE-A0667329A

PATIENT
  Age: 60 Year
  Sex: Female
  Weight: 86.4 kg

DRUGS (5)
  1. BENICAR [Concomitant]
  2. ASPIRIN [Concomitant]
  3. ACIPHEX [Concomitant]
  4. AVANDIA [Suspect]
     Indication: TYPE 2 DIABETES MELLITUS
     Dosage: 4MG PER DAY
     Route: 048
     Dates: start: 20040101, end: 20100101
  5. ZETIA [Concomitant]

REACTIONS (17)
  - MULTIPLE FRACTURES [None]
  - HEADACHE [None]
  - INCREASED TENDENCY TO BRUISE [None]
  - ABNORMAL SENSATION IN EYE [None]
  - BONE PAIN [None]
  - DYSPNOEA [None]
  - BURNING SENSATION [None]
  - AMNESIA [None]
  - PRURITUS [None]
  - LACRIMATION INCREASED [None]
  - MUSCLE SPASMS [None]
  - WEIGHT INCREASED [None]
  - CHEST PAIN [None]
  - ARRHYTHMIA [None]
  - TRANSIENT ISCHAEMIC ATTACK [None]
  - DIZZINESS [None]
  - COAGULOPATHY [None]
